FAERS Safety Report 21810928 (Version 3)
Quarter: 2023Q1

REPORT INFORMATION
  Report Type: Report from Study
  Country: GB (occurrence: GB)
  Receive Date: 20230103
  Receipt Date: 20230324
  Transmission Date: 20230418
  Serious: Yes (Death, Hospitalization, Other)
  Sender: FDA-Public Use
  Company Number: GB-GLAXOSMITHKLINE-GB2022EME195662

PATIENT

DRUGS (3)
  1. MEPOLIZUMAB [Suspect]
     Active Substance: MEPOLIZUMAB
     Indication: Asthma
     Dosage: 100 MG
     Dates: start: 202211, end: 20230304
  2. AMLODIPINE [Suspect]
     Active Substance: AMLODIPINE BESYLATE
     Indication: Blood pressure measurement
     Dosage: 10 MG, QD
  3. AMLODIPINE [Suspect]
     Active Substance: AMLODIPINE BESYLATE
     Dosage: 5 MG, QD

REACTIONS (9)
  - Death [Fatal]
  - Hospitalisation [Unknown]
  - Feeling hot [Unknown]
  - Headache [Unknown]
  - Hypotension [Unknown]
  - Malaise [Unknown]
  - Pyrexia [Unknown]
  - Chest pain [Unknown]
  - Dehydration [Unknown]

NARRATIVE: CASE EVENT DATE: 20230304
